FAERS Safety Report 8812233 (Version 1)
Quarter: 2012Q4

REPORT INFORMATION
  Report Type: 
  Country: US (occurrence: US)
  Receive Date: 20120927
  Receipt Date: 20120927
  Transmission Date: 20130627
  Serious: Yes (Death, Hospitalization, Other)
  Sender: FDA-Public Use
  Company Number: US-ROCHE-1124852

PATIENT
  Sex: Male

DRUGS (2)
  1. AVASTIN [Suspect]
     Indication: RENAL CANCER
     Route: 065
  2. AVASTIN [Suspect]
     Indication: MALIGNANT URINARY TRACT NEOPLASM

REACTIONS (13)
  - Death [Fatal]
  - Nausea [Unknown]
  - Dehydration [Unknown]
  - Hypertension [Unknown]
  - Fatigue [Unknown]
  - Vision blurred [Unknown]
  - Rhinorrhoea [Unknown]
  - Diarrhoea [Unknown]
  - Nervousness [Unknown]
  - Anxiety [Unknown]
  - Rash [Unknown]
  - Glossodynia [Unknown]
  - Anaemia [Unknown]
